FAERS Safety Report 9492142 (Version 1)
Quarter: 2013Q3

REPORT INFORMATION
  Report Type: Spontaneous
  Country: MX (occurrence: MX)
  Receive Date: 20130830
  Receipt Date: 20130830
  Transmission Date: 20140515
  Serious: No
  Sender: FDA-Public Use
  Company Number: MX-ACTELION-A-CH2013-87692

PATIENT
  Age: 25 Year
  Sex: Male
  Weight: 45.5 kg

DRUGS (4)
  1. TRACLEER [Suspect]
     Indication: PULMONARY ARTERIAL HYPERTENSION
     Dosage: 125 MG, BID
     Route: 048
     Dates: start: 20111227
  2. SILDENAFIL [Concomitant]
     Dosage: 25 MG, TID
     Route: 048
     Dates: start: 20081020
  3. PROPRANOLOL [Concomitant]
     Dosage: 20 MG, BID
  4. ASA [Concomitant]
     Dosage: 100 MG, QD

REACTIONS (2)
  - Pregnancy of partner [Unknown]
  - Normal newborn [Unknown]
